FAERS Safety Report 7248955-4 (Version None)
Quarter: 2011Q1

REPORT INFORMATION
  Report Type: 
  Country: None (occurrence: None)
  Receive Date: 20110128
  Receipt Date: 20110117
  Transmission Date: 20110831
  Serious: Yes (Other)
  Sender: FDA-Public Use
  Company Number: PHHY2011US01107

PATIENT
  Sex: Female
  Weight: 40.816 kg

DRUGS (5)
  1. EXELON [Suspect]
     Dosage: 9.5 MG
     Route: 062
     Dates: start: 20101220, end: 20110105
  2. CANCER PILL [Concomitant]
  3. EXELON [Suspect]
     Indication: DEMENTIA
     Dosage: 4.6 MG, UNK
     Route: 062
  4. EXELON [Suspect]
     Dosage: 4.6 MG, UNK
  5. NAMENDA [Concomitant]

REACTIONS (5)
  - HALLUCINATION [None]
  - CRYING [None]
  - MEMORY IMPAIRMENT [None]
  - DELUSION [None]
  - LOGORRHOEA [None]
